FAERS Safety Report 15898811 (Version 2)
Quarter: 2025Q3

REPORT INFORMATION
  Report Type: Spontaneous
  Country: EU (occurrence: EU)
  Receive Date: 20190201
  Receipt Date: 20250724
  Transmission Date: 20251021
  Serious: Yes (Death, Hospitalization, Other)
  Sender: AUROBINDO
  Company Number: EU-AUROBINDO-AUR-APL-2019-004360

PATIENT
  Age: 65 Year
  Sex: Male

DRUGS (2)
  1. GLYBURIDE [Suspect]
     Active Substance: GLYBURIDE
     Indication: Type 2 diabetes mellitus
     Route: 065
  2. METFORMIN [Suspect]
     Active Substance: METFORMIN HYDROCHLORIDE
     Indication: Type 2 diabetes mellitus
     Route: 065

REACTIONS (6)
  - Hyperreflexia [Fatal]
  - Hypoglycaemic coma [Fatal]
  - Loss of consciousness [Fatal]
  - Hypoglycaemic encephalopathy [Fatal]
  - Extensor plantar response [Fatal]
  - Hypoglycaemia [Unknown]
